FAERS Safety Report 13034906 (Version 1)
Quarter: 2016Q4

REPORT INFORMATION
  Report Type: Report from Study
  Country: GB (occurrence: GB)
  Receive Date: 20161216
  Receipt Date: 20161216
  Transmission Date: 20170207
  Serious: Yes (Other)
  Sender: FDA-Public Use
  Company Number: ALCN2016GB008434

PATIENT
  Age: 67 Year
  Sex: Male

DRUGS (5)
  1. APRACLONIDINE [Suspect]
     Active Substance: APRACLONIDINE HYDROCHLORIDE
     Indication: ANGLE CLOSURE GLAUCOMA
     Dosage: 1 DF, TID
     Route: 047
  2. ACETAZOLAMIDE. [Suspect]
     Active Substance: ACETAZOLAMIDE
     Indication: ANGLE CLOSURE GLAUCOMA
     Dosage: 1 DF, QID
     Route: 048
  3. LATANOPROST. [Suspect]
     Active Substance: LATANOPROST
     Indication: ANGLE CLOSURE GLAUCOMA
     Dosage: 1 DF, QD
     Route: 047
  4. ATROPINE. [Suspect]
     Active Substance: ATROPINE
     Indication: ANGLE CLOSURE GLAUCOMA
     Dosage: 1 DF, QD
     Route: 047
  5. AZARGA [Suspect]
     Active Substance: BRINZOLAMIDE\TIMOLOL MALEATE
     Indication: ANGLE CLOSURE GLAUCOMA
     Dosage: UNK
     Route: 047

REACTIONS (6)
  - Intraocular pressure increased [Recovered/Resolved with Sequelae]
  - Product use issue [Unknown]
  - Visual acuity reduced [Recovered/Resolved with Sequelae]
  - Corneal oedema [Recovered/Resolved with Sequelae]
  - Condition aggravated [Recovered/Resolved with Sequelae]
  - Eye haemorrhage [Recovered/Resolved with Sequelae]
